FAERS Safety Report 9043921 (Version 1)
Quarter: 2013Q1

REPORT INFORMATION
  Report Type: Report from Study
  Country: US (occurrence: US)
  Receive Date: 20130130
  Receipt Date: 20130130
  Transmission Date: 20140127
  Serious: No
  Sender: FDA-Public Use
  Company Number: US-ABBOTT-12P-163-0949846-00

PATIENT
  Age: 37 Year
  Sex: Female

DRUGS (8)
  1. HUMIRA 40 MG/0.8 ML PEN [Suspect]
     Indication: CROHN^S DISEASE
  2. LOSARTAN [Concomitant]
     Indication: HYPERTENSION
     Dosage: 100MG DAILY
  3. COREG [Concomitant]
     Indication: BLOOD PRESSURE
  4. SPIRONOLACTONE [Concomitant]
     Indication: CONGENITAL CYSTIC KIDNEY DISEASE
     Dosage: 25MG DAILY
  5. POTASSIUM [Concomitant]
     Indication: CROHN^S DISEASE
     Dosage: 1 TABLET DAILY
  6. CALCIUM [Concomitant]
     Indication: CROHN^S DISEASE
     Dosage: OVER THE COUNTER DAILY SUPPLEMENTS
  7. VITAMIN D [Concomitant]
     Indication: CROHN^S DISEASE
     Dosage: OVER THE COUNTER DAILY SUPPLEMENTS
  8. VITAMIN B-12 [Concomitant]
     Indication: CROHN^S DISEASE
     Dosage: MONTHLY

REACTIONS (1)
  - Injection site pain [Recovering/Resolving]
